FAERS Safety Report 9514886 (Version 1)
Quarter: 2013Q3

REPORT INFORMATION
  Report Type: Spontaneous
  Country: US (occurrence: None)
  Receive Date: 20130909
  Receipt Date: 20130909
  Transmission Date: 20140515
  Serious: Yes (Hospitalization)
  Sender: FDA-Public Use
  Company Number: 2013P1019002

PATIENT
  Age: 1 Year
  Sex: Female
  Weight: 8.9 kg

DRUGS (1)
  1. LAMOTRIGINE [Suspect]
     Route: 048

REACTIONS (4)
  - Serotonin syndrome [None]
  - Nausea [None]
  - Accidental exposure to product by child [None]
  - Toxicity to various agents [None]
